FAERS Safety Report 9058372 (Version 1)
Quarter: 2013Q1

REPORT INFORMATION
  Report Type: Report from Study
  Country: CA (occurrence: CA)
  Receive Date: 20130211
  Receipt Date: 20130211
  Transmission Date: 20140127
  Serious: Yes (Other)
  Sender: FDA-Public Use
  Company Number: CA-JNJFOC-20130117280

PATIENT
  Age: 81 None
  Sex: Male
  Weight: 70 kg

DRUGS (8)
  1. REMICADE [Suspect]
     Indication: RHEUMATOID ARTHRITIS
     Route: 042
     Dates: start: 20040804
  2. REMICADE [Suspect]
     Indication: RHEUMATOID ARTHRITIS
     Dosage: 64TH INFUSION
     Route: 042
     Dates: start: 20130130
  3. FUROSEMIDE [Concomitant]
     Route: 065
  4. LEFLUNOMIDE [Concomitant]
     Route: 065
  5. AMIODARONE [Concomitant]
     Route: 065
  6. RANITIDINE [Concomitant]
     Route: 065
  7. TEMAZEPAM [Concomitant]
     Route: 065
  8. T-3 [Concomitant]

REACTIONS (7)
  - Blood pressure increased [Unknown]
  - Tremor [Unknown]
  - Feeling cold [Unknown]
  - Chills [Unknown]
  - Body temperature increased [Unknown]
  - Infusion related reaction [Unknown]
  - Dizziness [Unknown]
